FAERS Safety Report 22230309 (Version 2)
Quarter: 2023Q2

REPORT INFORMATION
  Report Type: Spontaneous
  Country: JP (occurrence: JP)
  Receive Date: 20230419
  Receipt Date: 20230427
  Transmission Date: 20230722
  Serious: Yes (Hospitalization, Other)
  Sender: FDA-Public Use
  Company Number: JP-SA-2023SA106824

PATIENT
  Age: 61 Year
  Sex: Female
  Weight: 50.2 kg

DRUGS (16)
  1. TAXOTERE [Suspect]
     Active Substance: DOCETAXEL
     Indication: Neoplasm
     Dosage: 35 MG/M2, TIM
     Route: 042
     Dates: start: 20230118, end: 20230118
  2. TAXOTERE [Suspect]
     Active Substance: DOCETAXEL
     Dosage: 25 MG/M2, TIM
     Route: 042
     Dates: start: 20230216, end: 20230322
  3. BROTIZOLAM [Concomitant]
     Active Substance: BROTIZOLAM
     Indication: Insomnia
     Dosage: 0.5 MG, QD
     Route: 065
     Dates: start: 2020
  4. LOXOPROFEN SODIUM [Concomitant]
     Active Substance: LOXOPROFEN SODIUM
     Indication: Product used for unknown indication
     Route: 065
  5. HYALURONATE SODIUM [Concomitant]
     Active Substance: HYALURONATE SODIUM
     Indication: Dry eye
     Dosage: Q.S., PRN
     Route: 065
     Dates: start: 20230123
  6. GLYCYRON [GLYCYRRHIZIC ACID, AMMONIUM SALT] [Concomitant]
     Indication: Alanine aminotransferase increased
     Dosage: 300 MG, TID
     Route: 065
     Dates: start: 20230125
  7. GLYCYRON [GLYCYRRHIZIC ACID, AMMONIUM SALT] [Concomitant]
     Indication: Aspartate aminotransferase increased
  8. PL [Concomitant]
     Active Substance: ACETAMINOPHEN\CAFFEINE\PROMETHAZINE\SALICYLAMIDE
     Indication: Upper respiratory tract inflammation
     Dosage: 1 G, PRN
     Route: 065
     Dates: start: 20230131
  9. PL [Concomitant]
     Active Substance: ACETAMINOPHEN\CAFFEINE\PROMETHAZINE\SALICYLAMIDE
     Dosage: 1 G, TID
     Route: 065
     Dates: start: 20230131
  10. URSODIOL [Concomitant]
     Active Substance: URSODIOL
     Indication: Aspartate aminotransferase increased
     Dosage: 100 MG, TID
     Route: 065
     Dates: start: 20230131
  11. URSODIOL [Concomitant]
     Active Substance: URSODIOL
     Indication: Alanine aminotransferase increased
  12. MUCOSAL [ACETYLCYSTEINE] [Concomitant]
     Indication: Upper respiratory tract inflammation
     Dosage: 15 MG, TID
     Route: 065
     Dates: start: 20230208
  13. DEXTROMETHORPHAN HYDROBROMIDE [Concomitant]
     Active Substance: DEXTROMETHORPHAN HYDROBROMIDE
     Indication: Upper respiratory tract inflammation
     Dosage: 15 MG, TID
     Route: 065
     Dates: start: 20230203
  14. FEXOFENADINE HYDROCHLORIDE [Concomitant]
     Active Substance: FEXOFENADINE HYDROCHLORIDE
     Indication: Seasonal allergy
     Dosage: 60 MG, QD
     Route: 065
     Dates: start: 20230308
  15. MONTELUKAST SODIUM [Concomitant]
     Active Substance: MONTELUKAST SODIUM
     Indication: Upper respiratory tract inflammation
     Dosage: 10 MG, QD
     Route: 065
     Dates: start: 20230310
  16. CARBOCYSTEINE [Concomitant]
     Active Substance: CARBOCYSTEINE
     Indication: Upper respiratory tract inflammation
     Dosage: 500 MG, TID
     Route: 065
     Dates: start: 20230310

REACTIONS (4)
  - Leukopenia [Unknown]
  - Febrile neutropenia [Recovered/Resolved]
  - Neutropenia [Unknown]
  - COVID-19 [Unknown]

NARRATIVE: CASE EVENT DATE: 20230201
